APPROVED DRUG PRODUCT: ARIPIPRAZOLE
Active Ingredient: ARIPIPRAZOLE
Strength: 5MG
Dosage Form/Route: TABLET;ORAL
Application: A213037 | Product #002 | TE Code: AB
Applicant: SUNSHINE LAKE PHARMA CO LTD
Approved: Oct 2, 2023 | RLD: No | RS: No | Type: RX